FAERS Safety Report 5278124-9 (Version None)
Quarter: 2007Q1

REPORT INFORMATION
  Report Type: 
  Country: None (occurrence: None)
  Receive Date: 20061213
  Receipt Date: 20041109
  Transmission Date: 20070707
  Serious: Yes (Hospitalization)
  Sender: FDA-Public Use
  Company Number: 2004UW18935

PATIENT
  Age: 58 Year
  Sex: Female
  Weight: 81.6475 kg

DRUGS (4)
  1. SEROQUEL [Suspect]
     Indication: SLEEP DISORDER
     Dosage: 100 MG HS PO
     Route: 048
     Dates: start: 20040217, end: 20040607
  2. KLONOPIN [Concomitant]
  3. LEXAPRO [Concomitant]
  4. DEPAKOTE [Concomitant]

REACTIONS (2)
  - DIABETIC KETOACIDOSIS [None]
  - SOMNOLENCE [None]
